FAERS Safety Report 8259134-6 (Version None)
Quarter: 2012Q2

REPORT INFORMATION
  Report Type: 
  Country: None (occurrence: None)
  Receive Date: 20120403
  Receipt Date: 20120403
  Transmission Date: 20120825
  Serious: Yes (Hospitalization)
  Sender: FDA-Public Use
  Company Number: None

PATIENT
  Age: 72 Year
  Sex: Male
  Weight: 74 kg

DRUGS (2)
  1. CEFEPIME [Suspect]
     Indication: INFECTION
     Dosage: 1 GM UD IV
     Route: 042
     Dates: start: 20110906, end: 20111016
  2. VANCOMYCIN [Suspect]
     Dosage: 1000 MG UD IV
     Route: 042
     Dates: start: 20110825, end: 20110912

REACTIONS (4)
  - TUBULOINTERSTITIAL NEPHRITIS [None]
  - RENAL TUBULAR DISORDER [None]
  - RASH [None]
  - RENAL FAILURE ACUTE [None]
